FAERS Safety Report 7444176-0 (Version None)
Quarter: 2011Q2

REPORT INFORMATION
  Report Type: 
  Country: None (occurrence: None)
  Receive Date: 20110429
  Receipt Date: 20100406
  Transmission Date: 20111010
  Serious: No
  Sender: FDA-Public Use
  Company Number: US-BAYER-201019759NA

PATIENT

DRUGS (1)
  1. YAZ [Suspect]

REACTIONS (1)
  - BLOOD CHOLESTEROL INCREASED [None]
